FAERS Safety Report 12977569 (Version 1)
Quarter: 2016Q4

REPORT INFORMATION
  Report Type: Spontaneous
  Country: GB (occurrence: GB)
  Receive Date: 20161128
  Receipt Date: 20161128
  Transmission Date: 20170207
  Serious: Yes (Life-Threatening, Hospitalization)
  Sender: FDA-Public Use
  Company Number: GB-AUROBINDO-AUR-APL-2016-14109

PATIENT
  Age: 44 Year
  Sex: Male

DRUGS (6)
  1. METFORMIN TABLET [Suspect]
     Active Substance: METFORMIN HYDROCHLORIDE
     Indication: PRODUCT USED FOR UNKNOWN INDICATION
     Dosage: 1000 MG, TWO TIMES A DAY
     Route: 048
  2. CLARITHROMYCIN FILM-COATED TABLETS 500MG [Suspect]
     Active Substance: CLARITHROMYCIN
     Indication: BLISTER RUPTURE
     Dosage: 500 MG, PRESCRIBED TWICE DAILY. 2 DOSES TAKEN PRIOR TO ADMISSION
     Route: 048
     Dates: start: 20161103, end: 20161104
  3. TRAMADOL HARD CAPSULE [Suspect]
     Active Substance: TRAMADOL
     Indication: BLISTER RUPTURE
     Dosage: 50-100 MG FOUR TIMES A DAY
     Route: 048
     Dates: start: 20161103, end: 20161104
  4. TILDIEM [Suspect]
     Active Substance: DILTIAZEM HYDROCHLORIDE
     Indication: PRODUCT USED FOR UNKNOWN INDICATION
     Dosage: 200 MG, ONCE A DAY, IN THE MORNING.
     Route: 048
  5. ATORVASTATIN FILM-COATED TABLETS 20MG [Suspect]
     Active Substance: ATORVASTATIN
     Indication: PRODUCT USED FOR UNKNOWN INDICATION
     Dosage: 20 MG, ONCE A DAY, AT NIGHT.
     Route: 048
  6. LORATADINE. [Suspect]
     Active Substance: LORATADINE
     Indication: BLISTER RUPTURE
     Dosage: 10 MG, ONCE A DAY, PRESCRIBED 1 DAY PRIOR TO ADMISSION.
     Route: 048
     Dates: start: 20161103, end: 20161104

REACTIONS (1)
  - Stevens-Johnson syndrome [Unknown]

NARRATIVE: CASE EVENT DATE: 20161104
